FAERS Safety Report 23068326 (Version 1)
Quarter: 2023Q4

REPORT INFORMATION
  Report Type: Spontaneous
  Country: US (occurrence: None)
  Receive Date: 20231016
  Receipt Date: 20231016
  Transmission Date: 20240110
  Serious: No
  Sender: FDA-Public Use
  Company Number: 2023A233539

PATIENT
  Age: 59 Year
  Sex: Male

DRUGS (3)
  1. XIGDUO XR [Suspect]
     Active Substance: DAPAGLIFLOZIN PROPANEDIOL\METFORMIN HYDROCHLORIDE
     Indication: Type 2 diabetes mellitus
     Route: 048
  2. METFORMIN [Concomitant]
     Active Substance: METFORMIN HYDROCHLORIDE
  3. FARXIGA [Concomitant]
     Active Substance: DAPAGLIFLOZIN PROPANEDIOL

REACTIONS (1)
  - Noninfective gingivitis [Unknown]
